FAERS Safety Report 11827574 (Version 2)
Quarter: 2015Q4

REPORT INFORMATION
  Report Type: Spontaneous
  Country: US (occurrence: US)
  Receive Date: 20151211
  Receipt Date: 20151231
  Transmission Date: 20160305
  Serious: Yes (Death)
  Sender: FDA-Public Use
  Company Number: US-BEH-2015056513

PATIENT
  Sex: Female
  Weight: 69 kg

DRUGS (39)
  1. ZEMAIRA [Suspect]
     Active Substance: .ALPHA.1-PROTEINASE INHIBITOR HUMAN
     Indication: ALPHA-1 ANTI-TRYPSIN DEFICIENCY
     Route: 042
     Dates: start: 20111111
  2. DIPHENHYDRAMINE. [Concomitant]
     Active Substance: DIPHENHYDRAMINE
  3. EPIPEN [Concomitant]
     Active Substance: EPINEPHRINE
  4. LMX [Concomitant]
     Active Substance: LIDOCAINE
  5. METFORMIN [Concomitant]
     Active Substance: METFORMIN HYDROCHLORIDE
  6. ALBUTEROL. [Concomitant]
     Active Substance: ALBUTEROL
  7. PROVENTIL HFA [Concomitant]
     Active Substance: ALBUTEROL SULFATE
  8. FLONASE [Concomitant]
     Active Substance: FLUTICASONE PROPIONATE
  9. ISOSORBIDE MONONITRATE. [Concomitant]
     Active Substance: ISOSORBIDE MONONITRATE
  10. CALCIUM [Concomitant]
     Active Substance: CALCIUM
  11. OCEAN SALINE NASAL SPRAY [Concomitant]
     Active Substance: SODIUM CHLORIDE
  12. PREDNISONE. [Concomitant]
     Active Substance: PREDNISONE
  13. FLONASE [Concomitant]
     Active Substance: FLUTICASONE PROPIONATE
  14. PRECOSE [Concomitant]
     Active Substance: ACARBOSE
  15. NORMAL SALINE [Concomitant]
     Active Substance: SODIUM CHLORIDE
  16. SODIUM CHLORIDE. [Concomitant]
     Active Substance: SODIUM CHLORIDE
  17. DALIRESP [Concomitant]
     Active Substance: ROFLUMILAST
  18. OMEPRAZOLE. [Concomitant]
     Active Substance: OMEPRAZOLE
  19. SPIRIVA [Concomitant]
     Active Substance: TIOTROPIUM BROMIDE MONOHYDRATE
  20. HYDROCODONE BITARTRATE AND ACETAMINOPHEN [Concomitant]
     Active Substance: ACETAMINOPHEN\HYDROCODONE BITARTRATE
  21. BENZONATATE. [Concomitant]
     Active Substance: BENZONATATE
  22. MIRALAX [Concomitant]
     Active Substance: POLYETHYLENE GLYCOL 3350
  23. SYNTHROID [Concomitant]
     Active Substance: LEVOTHYROXINE SODIUM
  24. ALPRAZOLAM. [Concomitant]
     Active Substance: ALPRAZOLAM
  25. METAMUCIL [Concomitant]
     Active Substance: PLANTAGO SEED
  26. CARVEDILOL. [Concomitant]
     Active Substance: CARVEDILOL
  27. ALBUTEROL SULFATE. [Concomitant]
     Active Substance: ALBUTEROL SULFATE
  28. LISINOPRIL. [Concomitant]
     Active Substance: LISINOPRIL
  29. BACTRIM DS [Concomitant]
     Active Substance: SULFAMETHOXAZOLE\TRIMETHOPRIM
  30. ASPIRIN EC [Concomitant]
     Active Substance: ASPIRIN
  31. ZEMAIRA [Suspect]
     Active Substance: .ALPHA.1-PROTEINASE INHIBITOR HUMAN
     Indication: CHRONIC OBSTRUCTIVE PULMONARY DISEASE
     Route: 042
  32. FUROSEMIDE. [Concomitant]
     Active Substance: FUROSEMIDE
  33. NASAL SPRAY [Concomitant]
     Active Substance: UNSPECIFIED INGREDIENT
  34. PRECOSE [Concomitant]
     Active Substance: ACARBOSE
  35. CVS VITAMIN D [Concomitant]
  36. ZEMAIRA [Suspect]
     Active Substance: .ALPHA.1-PROTEINASE INHIBITOR HUMAN
     Indication: OBSTRUCTIVE AIRWAYS DISORDER
     Route: 042
  37. SIMVASTATIN. [Concomitant]
     Active Substance: SIMVASTATIN
  38. ADVAIR HFA [Concomitant]
     Active Substance: FLUTICASONE PROPIONATE\SALMETEROL XINAFOATE
  39. PLAVIX [Concomitant]
     Active Substance: CLOPIDOGREL BISULFATE

REACTIONS (3)
  - Chronic obstructive pulmonary disease [Fatal]
  - Fall [Unknown]
  - Respiratory failure [Fatal]
